FAERS Safety Report 25019763 (Version 1)
Quarter: 2025Q1

REPORT INFORMATION
  Report Type: Spontaneous
  Country: FR (occurrence: None)
  Receive Date: 20250227
  Receipt Date: 20250227
  Transmission Date: 20250408
  Serious: Yes (Other)
  Sender: INCYTE
  Company Number: FR-002147023-NVSC2025FR032379

PATIENT
  Age: 75 Year

DRUGS (1)
  1. RUXOLITINIB [Suspect]
     Active Substance: RUXOLITINIB
     Indication: Primary myelofibrosis
     Dosage: 10 MG, BID
     Route: 065

REACTIONS (2)
  - Impaired healing [Unknown]
  - Squamous cell carcinoma [Unknown]
